FAERS Safety Report 20457338 (Version 1)
Quarter: 2022Q1

REPORT INFORMATION
  Report Type: Spontaneous
  Country: US (occurrence: None)
  Receive Date: 20220210
  Receipt Date: 20220210
  Transmission Date: 20220424
  Serious: Yes (Other)
  Sender: FDA-Public Use
  Company Number: US-ROCHE-3015408

PATIENT
  Age: 79 Year
  Sex: Female

DRUGS (6)
  1. ESBRIET [Suspect]
     Active Substance: PIRFENIDONE
     Indication: Essential hypertension
     Dosage: TAKE 3 TABLETS BY MOUTH 3 TIMES DAILY WITH FOOD
     Route: 048
     Dates: start: 20210618
  2. AMLODIPINE [Concomitant]
     Active Substance: AMLODIPINE BESYLATE
  3. GABAPENTIN [Concomitant]
     Active Substance: GABAPENTIN
  4. PEPCID [Concomitant]
     Active Substance: FAMOTIDINE
  5. PRAVASTATIN [Concomitant]
     Active Substance: PRAVASTATIN
  6. SOTALOL [Concomitant]
     Active Substance: SOTALOL

REACTIONS (2)
  - Hospice care [Unknown]
  - Off label use [Unknown]

NARRATIVE: CASE EVENT DATE: 20220128
